FAERS Safety Report 8322464-3 (Version None)
Quarter: 2012Q2

REPORT INFORMATION
  Report Type: 
  Country: None (occurrence: None)
  Receive Date: 20120430
  Receipt Date: 20100106
  Transmission Date: 20120825
  Serious: No
  Sender: FDA-Public Use
  Company Number: US-TEVA-2010000090

PATIENT

DRUGS (1)
  1. NUVIGIL [Suspect]
     Route: 048
     Dates: start: 20090101, end: 20090101

REACTIONS (1)
  - FEELING JITTERY [None]
